FAERS Safety Report 22206029 (Version 1)
Quarter: 2023Q2

REPORT INFORMATION
  Report Type: Spontaneous
  Country: RU (occurrence: RU)
  Receive Date: 20230413
  Receipt Date: 20230413
  Transmission Date: 20230722
  Serious: Yes (Other)
  Sender: FDA-Public Use
  Company Number: RU-CHEPLA-2023004712

PATIENT
  Age: 59 Year
  Sex: Female

DRUGS (1)
  1. HYDROXYUREA [Suspect]
     Active Substance: HYDROXYUREA
     Indication: Chronic myeloid leukaemia
     Dosage: SHE HAD BEEN RECEIVING HYDROXYCARBAMIDE UP TO THE THIRD VISIT. AFTER THE THIRD VISIT AND UNTIL NO...

REACTIONS (2)
  - Keratoconus [Unknown]
  - Disease recurrence [Unknown]
